FAERS Safety Report 18339149 (Version 3)
Quarter: 2020Q4

REPORT INFORMATION
  Report Type: Spontaneous
  Country: US (occurrence: US)
  Receive Date: 20201002
  Receipt Date: 20201016
  Transmission Date: 20210113
  Serious: Yes (Hospitalization)
  Sender: FDA-Public Use
  Company Number: US-ALLERGAN-2035216US

PATIENT
  Sex: Male

DRUGS (1)
  1. LINZESS [Suspect]
     Active Substance: LINACLOTIDE
     Indication: CONSTIPATION
     Dosage: 290 ?G, QD
     Route: 048
     Dates: start: 2019

REACTIONS (8)
  - Wound haemorrhage [Recovered/Resolved]
  - Localised infection [Recovering/Resolving]
  - Constipation [Unknown]
  - Inability to afford medication [Unknown]
  - Pain in extremity [Recovered/Resolved]
  - Intentional product misuse [Unknown]
  - Therapy interrupted [Unknown]
  - Bone pain [Recovered/Resolved]

NARRATIVE: CASE EVENT DATE: 202009
